FAERS Safety Report 6058220-9 (Version None)
Quarter: 2009Q1

REPORT INFORMATION
  Report Type: 
  Country: None (occurrence: None)
  Receive Date: 20090130
  Receipt Date: 20090121
  Transmission Date: 20090719
  Serious: Yes (Hospitalization)
  Sender: FDA-Public Use
  Company Number: US-JNJFOC-20081006415

PATIENT
  Sex: Female
  Weight: 72.58 kg

DRUGS (16)
  1. LEVAQUIN [Suspect]
     Route: 048
  2. LEVAQUIN [Suspect]
     Route: 048
  3. LEVAQUIN [Suspect]
     Route: 048
  4. LEVAQUIN [Suspect]
     Route: 048
  5. LEVAQUIN [Suspect]
     Route: 048
  6. LEVAQUIN [Suspect]
     Route: 048
  7. LEVAQUIN [Suspect]
     Route: 048
  8. LEVAQUIN [Suspect]
     Indication: PNEUMONIA
     Route: 048
  9. LEVAQUIN [Suspect]
     Indication: BRONCHITIS
     Route: 048
  10. PRAVASTATIN [Concomitant]
     Indication: BLOOD CHOLESTEROL
     Route: 048
  11. PREVACID [Concomitant]
     Indication: ULCER
     Route: 048
  12. PHENERGAN HCL [Concomitant]
     Indication: NAUSEA
     Route: 048
  13. CLONAZPAM [Concomitant]
     Indication: ANXIETY
     Route: 048
  14. AMBIEN [Concomitant]
     Indication: SLEEP DISORDER
     Dosage: ONE PER NIGHT
     Route: 048
  15. HYDROCODONE [Concomitant]
     Indication: PAIN
     Route: 048
  16. DIAZAPAM [Concomitant]
     Indication: ANXIETY
     Dosage: AS NEEDED
     Route: 048

REACTIONS (17)
  - ABNORMAL BEHAVIOUR [None]
  - ANXIETY [None]
  - ARTHRALGIA [None]
  - CHONDROPATHY [None]
  - CONFUSIONAL STATE [None]
  - CYST [None]
  - HALLUCINATION [None]
  - JOINT SWELLING [None]
  - LIGAMENT INJURY [None]
  - MENISCUS LESION [None]
  - NAUSEA [None]
  - OSTEOARTHRITIS [None]
  - PSYCHOTIC DISORDER [None]
  - RESTLESSNESS [None]
  - SLEEP DISORDER [None]
  - TENDON RUPTURE [None]
  - THINKING ABNORMAL [None]
